FAERS Safety Report 21094985 (Version 1)
Quarter: 2022Q3

REPORT INFORMATION
  Report Type: Spontaneous
  Country: CN (occurrence: None)
  Receive Date: 20220718
  Receipt Date: 20220718
  Transmission Date: 20221026
  Serious: Yes (Other)
  Sender: FDA-Public Use
  Company Number: CN-ROCHE-3138396

PATIENT
  Age: 68 Year
  Sex: Male

DRUGS (2)
  1. TECENTRIQ [Suspect]
     Active Substance: ATEZOLIZUMAB
     Indication: Hepatic cancer
     Dosage: NEXT CYCLES ON 27/APR/2022, 20/MAY/2022, 14/JUN/2022
     Route: 042
     Dates: start: 20211207
  2. AVASTIN [Suspect]
     Active Substance: BEVACIZUMAB
     Indication: Hepatic cancer
     Dosage: NEXT CYCLES ON 27/APR/2022, 20/MAY/2022, 14/JUN/2022
     Route: 042
     Dates: start: 20211207

REACTIONS (1)
  - Autoimmune myocarditis [Recovering/Resolving]
